FAERS Safety Report 8493068-7 (Version None)
Quarter: 2012Q3

REPORT INFORMATION
  Report Type: 
  Country: None (occurrence: None)
  Receive Date: 20120706
  Receipt Date: 20120621
  Transmission Date: 20120928
  Serious: Yes (Other)
  Sender: FDA-Public Use
  Company Number: US-ARROW-2012-11076

PATIENT
  Sex: Female
  Weight: 76 kg

DRUGS (2)
  1. FENTANYL-25 [Suspect]
     Dosage: 25 MCG,1 PATCH EVERY 2 DAYS
     Route: 062
     Dates: start: 20101201, end: 20120608
  2. FENTANYL-25 [Suspect]
     Indication: PAIN
     Dosage: 25 MCG, 1 PATCH EVERY 3 DAYS
     Route: 062
     Dates: start: 20120609

REACTIONS (7)
  - WEIGHT DECREASED [None]
  - GASTROINTESTINAL PAIN [None]
  - DIARRHOEA [None]
  - ASTHENIA [None]
  - NAUSEA [None]
  - DECREASED APPETITE [None]
  - CONSTIPATION [None]
